FAERS Safety Report 9980746 (Version 1)
Quarter: 2014Q1

REPORT INFORMATION
  Report Type: Spontaneous
  Country: US (occurrence: US)
  Receive Date: 20140307
  Receipt Date: 20140307
  Transmission Date: 20141002
  Serious: Yes (Hospitalization)
  Sender: FDA-Public Use
  Company Number: US-ROCHE-1357630

PATIENT
  Sex: Male
  Weight: 83.99 kg

DRUGS (1)
  1. XELODA [Suspect]
     Indication: OESOPHAGEAL CARCINOMA
     Dosage: 2 TABLETS TWICE DAILY
     Route: 048
     Dates: start: 20130823

REACTIONS (1)
  - Tumour excision [Unknown]
